FAERS Safety Report 7007712-4 (Version None)
Quarter: 2010Q3

REPORT INFORMATION
  Report Type: 
  Country: None (occurrence: None)
  Receive Date: 20100922
  Receipt Date: 20100812
  Transmission Date: 20110219
  Serious: Yes (Other)
  Sender: FDA-Public Use
  Company Number: US-BAXTER-2010BH007378

PATIENT
  Age: 24 Year
  Sex: Female
  Weight: 93 kg

DRUGS (14)
  1. HEPARIN SODIUM INJECTION [Suspect]
     Indication: PULMONARY EMBOLISM
     Route: 040
     Dates: start: 20080203, end: 20080203
  2. HEPARIN SODIUM INJECTION [Suspect]
     Indication: PROPHYLAXIS
     Route: 040
     Dates: start: 20080203, end: 20080203
  3. HEPARIN SODIUM INJECTION [Suspect]
     Route: 041
     Dates: start: 20080203, end: 20080210
  4. HEPARIN SODIUM INJECTION [Suspect]
     Route: 041
     Dates: start: 20080203, end: 20080210
  5. HEPARIN SODIUM INJECTION [Suspect]
     Route: 058
     Dates: start: 20080507, end: 20080508
  6. HEPARIN SODIUM INJECTION [Suspect]
     Route: 058
     Dates: start: 20080507, end: 20080508
  7. TETRACYCLINE HYDROCHLORIDE [Concomitant]
     Indication: PRODUCT USED FOR UNKNOWN INDICATION
     Route: 048
     Dates: start: 20080101
  8. METHERGINE [Concomitant]
     Indication: PRODUCT USED FOR UNKNOWN INDICATION
     Route: 048
     Dates: start: 20080101
  9. CELEBREX [Concomitant]
     Indication: PRODUCT USED FOR UNKNOWN INDICATION
     Route: 048
     Dates: start: 20080101
  10. MORPHINE [Concomitant]
     Indication: PRODUCT USED FOR UNKNOWN INDICATION
     Route: 065
  11. PRILOSEC [Concomitant]
     Indication: PRODUCT USED FOR UNKNOWN INDICATION
     Route: 048
  12. WARFARIN [Concomitant]
     Indication: PRODUCT USED FOR UNKNOWN INDICATION
     Route: 048
  13. TYLENOL [Concomitant]
     Indication: PRODUCT USED FOR UNKNOWN INDICATION
     Route: 048
  14. DEXTROSE [Concomitant]
     Indication: MEDICATION DILUTION
     Route: 041
     Dates: start: 20080203, end: 20080210

REACTIONS (8)
  - ASTHENIA [None]
  - ATELECTASIS [None]
  - CHEST PAIN [None]
  - DYSPNOEA [None]
  - HEADACHE [None]
  - HYPOAESTHESIA [None]
  - MUSCLE SPASMS [None]
  - PARAESTHESIA [None]
